FAERS Safety Report 24281973 (Version 1)
Quarter: 2024Q3

REPORT INFORMATION
  Report Type: Spontaneous
  Country: US (occurrence: US)
  Receive Date: 20240904
  Receipt Date: 20240904
  Transmission Date: 20241016
  Serious: No
  Sender: MERZ
  Company Number: US-MRZWEB-2024070000120

PATIENT
  Sex: Female

DRUGS (1)
  1. XEOMIN [Suspect]
     Active Substance: INCOBOTULINUMTOXINA
     Indication: Muscle spasms

REACTIONS (2)
  - Dry eye [Unknown]
  - Therapeutic response decreased [Unknown]
